FAERS Safety Report 7472970-9 (Version None)
Quarter: 2011Q2

REPORT INFORMATION
  Report Type: 
  Country: None (occurrence: None)
  Receive Date: 20110511
  Receipt Date: 20110502
  Transmission Date: 20111010
  Serious: Yes (Hospitalization, Other)
  Sender: FDA-Public Use
  Company Number: PHHY2011US17012

PATIENT
  Sex: Female
  Weight: 60 kg

DRUGS (2)
  1. EXJADE [Suspect]
     Indication: MYELODYSPLASTIC SYNDROME
     Dosage: 1375 MG, DAILY
     Route: 048
     Dates: start: 20080311
  2. EXJADE [Suspect]
     Indication: IRON OVERLOAD

REACTIONS (3)
  - LOWER LIMB FRACTURE [None]
  - FALL [None]
  - ANKLE FRACTURE [None]
